FAERS Safety Report 4717936-4 (Version None)
Quarter: 2005Q3

REPORT INFORMATION
  Report Type: 
  Country: None (occurrence: None)
  Receive Date: 20050720
  Receipt Date: 20050711
  Transmission Date: 20060218
  Serious: Yes (Life-Threatening, Hospitalization)
  Sender: FDA-Public Use
  Company Number: FR-JNJFOC-20050205651

PATIENT
  Sex: Male
  Weight: 93 kg

DRUGS (12)
  1. BLINDED; ABCIXIMA [Suspect]
     Route: 042
  2. BLINDED; ABCIXIMA [Suspect]
     Indication: ACUTE MYOCARDIAL INFARCTION
     Route: 042
  3. RETEPLASE [Suspect]
     Indication: ACUTE MYOCARDIAL INFARCTION
     Route: 042
  4. PLACEBO [Suspect]
     Indication: ACUTE MYOCARDIAL INFARCTION
     Route: 042
  5. LOVENOX [Concomitant]
     Indication: ACUTE MYOCARDIAL INFARCTION
     Route: 058
  6. PLAVIX [Concomitant]
     Indication: ACUTE MYOCARDIAL INFARCTION
     Route: 048
  7. KARDEGIC [Concomitant]
     Indication: ACUTE MYOCARDIAL INFARCTION
     Route: 048
  8. RAMIPRIL [Concomitant]
     Indication: ACUTE MYOCARDIAL INFARCTION
     Route: 048
  9. LASIX [Concomitant]
     Route: 042
  10. ISOPTIN [Concomitant]
     Indication: ACUTE MYOCARDIAL INFARCTION
     Route: 048
  11. PRAVASTATIN [Concomitant]
     Indication: ACUTE MYOCARDIAL INFARCTION
     Route: 048
  12. BISOPROLOL [Concomitant]

REACTIONS (3)
  - CARDIAC TAMPONADE [None]
  - CHEST PAIN [None]
  - VENTRICULAR FIBRILLATION [None]
